FAERS Safety Report 23247677 (Version 2)
Quarter: 2023Q4

REPORT INFORMATION
  Report Type: Spontaneous
  Country: ZA (occurrence: ZA)
  Receive Date: 20231130
  Receipt Date: 20231205
  Transmission Date: 20240110
  Serious: Yes (Other)
  Sender: FDA-Public Use
  Company Number: ZA-PFIZER INC-202300414588

PATIENT
  Age: 55 Year
  Sex: Female
  Weight: 66 kg

DRUGS (4)
  1. METHOTREXATE SODIUM [Suspect]
     Active Substance: METHOTREXATE SODIUM
     Dosage: 20 MG, WEEKLY
     Dates: start: 19980101
  2. ARAVA [Suspect]
     Active Substance: LEFLUNOMIDE
     Dosage: 20 MG, 3X/WEEK
     Dates: start: 202201
  3. HUMIRA [Suspect]
     Active Substance: ADALIMUMAB
     Dosage: 40 MG, FORTNIGHTLY
     Dates: start: 20150520
  4. CHLOROQUINE [Concomitant]
     Active Substance: CHLOROQUINE
     Dosage: UNK
     Dates: start: 19980101, end: 20040101

REACTIONS (3)
  - Panniculitis [Unknown]
  - Vasculitis [Unknown]
  - Drug ineffective [Unknown]
